FAERS Safety Report 5705468-6 (Version None)
Quarter: 2008Q2

REPORT INFORMATION
  Report Type: 
  Country: None (occurrence: None)
  Receive Date: 20080410
  Receipt Date: 20080328
  Transmission Date: 20081010
  Serious: Yes (Congenital Anomaly)
  Sender: FDA-Public Use
  Company Number: 100#03#2008-01840

PATIENT

DRUGS (6)
  1. ONDANSETRON HCL [Suspect]
     Indication: DRUG EXPOSURE DURING PREGNANCY
     Dosage: TRANSPLACENTAL
     Route: 061
     Dates: start: 20070816, end: 20071127
  2. OMEPRAZOLE [Suspect]
     Indication: DRUG EXPOSURE DURING PREGNANCY
     Dosage: 20 MG, TRANSPLACENTAL
     Route: 064
     Dates: start: 20071005
  3. FERROUS SULFATE TAB [Suspect]
     Dosage: TRANSPLACENTAL
     Route: 064
     Dates: start: 20071129
  4. FOLIC ACID [Suspect]
     Indication: DRUG EXPOSURE DURING PREGNANCY
     Dosage: TRANSPLACENTAL
     Route: 064
     Dates: start: 20071129
  5. GAVISCON [Suspect]
     Indication: DRUG EXPOSURE DURING PREGNANCY
     Dosage: TRANSPLACENTAL
     Route: 064
  6. PROMETHAZINE [Suspect]
     Indication: DRUG EXPOSURE DURING PREGNANCY
     Dosage: 25 MG; TRANSPLACENTAL
     Route: 064
     Dates: start: 20070727

REACTIONS (2)
  - DRUG EXPOSURE DURING PREGNANCY [None]
  - TALIPES [None]
